FAERS Safety Report 18740384 (Version 1)
Quarter: 2021Q1

REPORT INFORMATION
  Report Type: Spontaneous
  Country: US (occurrence: US)
  Receive Date: 20210114
  Receipt Date: 20210114
  Transmission Date: 20210419
  Serious: Yes (Death, Hospitalization)
  Sender: FDA-Public Use
  Company Number: None

PATIENT
  Age: 73 Year
  Sex: Female
  Weight: 53 kg

DRUGS (2)
  1. CISPLATIN. [Suspect]
     Active Substance: CISPLATIN
     Dates: end: 20200423
  2. GEMCITABINE HYDROCHLORIDE. [Suspect]
     Active Substance: GEMCITABINE HYDROCHLORIDE
     Dates: end: 20200422

REACTIONS (8)
  - Diffuse large B-cell lymphoma [None]
  - Dyspnoea [None]
  - Respiratory failure [None]
  - Back pain [None]
  - Musculoskeletal chest pain [None]
  - Spinal disorder [None]
  - Atypical mycobacterial infection [None]
  - Urinary cystectomy [None]

NARRATIVE: CASE EVENT DATE: 20201204
